FAERS Safety Report 12231749 (Version 2)
Quarter: 2016Q2

REPORT INFORMATION
  Report Type: Spontaneous
  Country: US (occurrence: US)
  Receive Date: 20160401
  Receipt Date: 20160418
  Transmission Date: 20160815
  Serious: Yes (Other)
  Sender: FDA-Public Use
  Company Number: US-BIOGEN-2016BI00212745

PATIENT
  Sex: Female

DRUGS (1)
  1. AVONEX [Suspect]
     Active Substance: INTERFERON BETA-1A
     Indication: EXPOSURE VIA FATHER
     Route: 030
     Dates: start: 20141013, end: 20150706

REACTIONS (2)
  - Abortion spontaneous [Recovered/Resolved]
  - Exposure via father [Recovered/Resolved]

NARRATIVE: CASE EVENT DATE: 2015
